FAERS Safety Report 6610913-8 (Version None)
Quarter: 2010Q1

REPORT INFORMATION
  Report Type: 
  Country: None (occurrence: None)
  Receive Date: 20100222
  Receipt Date: 20100209
  Transmission Date: 20100710
  Serious: Yes (Hospitalization, Other)
  Sender: FDA-Public Use
  Company Number: 2009-189179-NL

PATIENT
  Age: 25 Year
  Sex: Female
  Weight: 52.2 kg

DRUGS (32)
  1. NUVARING [Suspect]
     Indication: CONTRACEPTION
     Dosage: VAG
     Route: 067
     Dates: start: 19950901, end: 20061223
  2. AMBIEN [Concomitant]
  3. CELEXA [Concomitant]
  4. XANAX [Concomitant]
  5. VIOXX [Concomitant]
  6. AMERGE [Concomitant]
  7. EFFEXOR [Concomitant]
  8. TOPAMAX [Concomitant]
  9. RELPAX [Concomitant]
  10. METRONIDAZOLE [Concomitant]
  11. LEVAQUIN [Concomitant]
  12. PREDNISONE [Concomitant]
  13. ALBUTEROL [Concomitant]
  14. DIFLUCAN [Concomitant]
  15. LORAZEPAM [Concomitant]
  16. SERZONE [Concomitant]
  17. METHYLPHENIDATE [Concomitant]
  18. AMOXICILLIN [Concomitant]
  19. BETAMETHASONE W/CLOTRIMAZOLE [Concomitant]
  20. TERAZOL 1 [Concomitant]
  21. ORTHO TGRI-CYCLEN [Concomitant]
  22. YASMIN [Concomitant]
  23. NASONEX [Concomitant]
  24. CLARINEX [Concomitant]
  25. AMITRIPTYLINE HCL [Concomitant]
  26. ZOMIG [Concomitant]
  27. ACETAMINOPHEN W/ CODEINE [Concomitant]
  28. ALLERX [Concomitant]
  29. MYTUSSIN [Concomitant]
  30. SINGULAIR [Concomitant]
  31. METHYLPREDNISOLONE [Concomitant]
  32. VICOPROFEN [Concomitant]

REACTIONS (22)
  - AGORAPHOBIA [None]
  - ALOPECIA [None]
  - ANXIETY [None]
  - BREAST DISORDER [None]
  - BREAST PAIN [None]
  - CEREBROVASCULAR ACCIDENT [None]
  - CONDITION AGGRAVATED [None]
  - DRY SKIN [None]
  - EPISTAXIS [None]
  - FATIGUE [None]
  - HIATUS HERNIA [None]
  - INSOMNIA [None]
  - MAJOR DEPRESSION [None]
  - MENORRHAGIA [None]
  - MIGRAINE [None]
  - NAUSEA [None]
  - PHARYNGITIS [None]
  - RASH [None]
  - SOCIAL PHOBIA [None]
  - URINARY TRACT INFECTION [None]
  - VASOSPASM [None]
  - VIRAL INFECTION [None]
